FAERS Safety Report 9458035 (Version 3)
Quarter: 2013Q4

REPORT INFORMATION
  Report Type: Report from Study
  Country: ES (occurrence: ES)
  Receive Date: 20130814
  Receipt Date: 20131205
  Transmission Date: 20140711
  Serious: Yes (Other)
  Sender: FDA-Public Use
  Company Number: ES-ROCHE-1260244

PATIENT
  Age: 53 Year
  Sex: Male
  Weight: 89 kg

DRUGS (6)
  1. RIBAVIRIN [Suspect]
     Indication: HEPATITIS C
     Route: 048
     Dates: start: 20120525, end: 20130426
  2. PEG-INTERFERON ALFA 2A [Suspect]
     Indication: HEPATITIS C
     Route: 065
     Dates: start: 20120525, end: 20130426
  3. BOCEPREVIR [Suspect]
     Indication: HEPATITIS C
     Dosage: EVERY 8 HOURS
     Route: 048
     Dates: start: 20120623, end: 20130201
  4. AUGMENTIN [Concomitant]
     Route: 065
     Dates: start: 20120611
  5. IBUPROFEN [Concomitant]
     Route: 065
     Dates: start: 20120611
  6. ACETAMINOPHEN [Concomitant]
     Route: 065
     Dates: start: 20120611

REACTIONS (5)
  - Pancytopenia [Not Recovered/Not Resolved]
  - Haemoglobin decreased [Not Recovered/Not Resolved]
  - White blood cell count decreased [Recovering/Resolving]
  - Neutrophil count decreased [Recovering/Resolving]
  - Anaemia [Recovered/Resolved]
